FAERS Safety Report 17840031 (Version 1)
Quarter: 2020Q2

REPORT INFORMATION
  Report Type: Spontaneous
  Country: US (occurrence: US)
  Receive Date: 20200529
  Receipt Date: 20200529
  Transmission Date: 20200714
  Serious: Yes (Other)
  Sender: FDA-Public Use
  Company Number: US-ACCORD-133716

PATIENT
  Age: 51 Year
  Sex: Female

DRUGS (11)
  1. CLONAZEPAM ACCORD [Suspect]
     Active Substance: CLONAZEPAM
     Indication: EPILEPSY
     Dosage: TWICE A DAY
     Route: 048
     Dates: start: 20190403
  2. SYNTHROID [Concomitant]
     Active Substance: LEVOTHYROXINE SODIUM
  3. ZOLPIDEM [Concomitant]
     Active Substance: ZOLPIDEM TARTRATE
  4. CLONIDINE. [Concomitant]
     Active Substance: CLONIDINE
  5. OMEPRAZOLE. [Concomitant]
     Active Substance: OMEPRAZOLE
  6. ERGOCALCIFEROL. [Concomitant]
     Active Substance: ERGOCALCIFEROL
  7. EUTAL-ACET-CAFF [Concomitant]
  8. HYDROCODONE [Concomitant]
     Active Substance: HYDROCODONE
  9. SOMA [Concomitant]
     Active Substance: CARISOPRODOL
  10. SERTRALINE [Concomitant]
     Active Substance: SERTRALINE HYDROCHLORIDE
  11. ROSUVASTATIN/ROSUVASTATIN CALCIUM [Concomitant]
     Active Substance: ROSUVASTATIN CALCIUM

REACTIONS (6)
  - Swollen tongue [Not Recovered/Not Resolved]
  - Seizure [Not Recovered/Not Resolved]
  - Condition aggravated [Not Recovered/Not Resolved]
  - Taste disorder [Not Recovered/Not Resolved]
  - Generalised tonic-clonic seizure [Not Recovered/Not Resolved]
  - Urinary incontinence [Not Recovered/Not Resolved]
